FAERS Safety Report 8066129-4 (Version None)
Quarter: 2012Q1

REPORT INFORMATION
  Report Type: 
  Country: None (occurrence: None)
  Receive Date: 20120124
  Receipt Date: 20120111
  Transmission Date: 20120608
  Serious: No
  Sender: FDA-Public Use
  Company Number: CA-UCBSA-049843

PATIENT
  Age: 57 Year
  Sex: Male
  Weight: 73.6 kg

DRUGS (1)
  1. CERTOLIZUMAB PEGOL [Suspect]
     Indication: RHEUMATOID ARTHRITIS
     Dosage: NO OF DOSES RECEIVED:24
     Route: 058
     Dates: start: 20101222

REACTIONS (1)
  - PNEUMONIA [None]
